FAERS Safety Report 15838986 (Version 3)
Quarter: 2019Q1

REPORT INFORMATION
  Report Type: Spontaneous
  Country: US (occurrence: US)
  Receive Date: 20190117
  Receipt Date: 20190118
  Transmission Date: 20190417
  Serious: Yes (Death, Hospitalization, Other)
  Sender: FDA-Public Use
  Company Number: US-UNITED THERAPEUTICS-UNT-2019-000739

PATIENT
  Age: 58 Year
  Sex: Female

DRUGS (2)
  1. REMODULIN [Suspect]
     Active Substance: TREPROSTINIL
     Dosage: 0.0783 ?G/KG, CONTINUING
     Route: 058
  2. REMODULIN [Suspect]
     Active Substance: TREPROSTINIL
     Indication: PULMONARY ARTERIAL HYPERTENSION
     Dosage: 0.0793 ?G/KG, CONTINUING
     Route: 058
     Dates: start: 20170608

REACTIONS (3)
  - Hypotension [Recovering/Resolving]
  - Renal failure [Fatal]
  - Fluid retention [Recovering/Resolving]

NARRATIVE: CASE EVENT DATE: 20181231
